FAERS Safety Report 4415192-8 (Version None)
Quarter: 2004Q3

REPORT INFORMATION
  Report Type: 
  Country: None (occurrence: None)
  Receive Date: 20040730
  Receipt Date: 20040719
  Transmission Date: 20050211
  Serious: Yes (Hospitalization, Disabling, Other)
  Sender: FDA-Public Use
  Company Number: USA-2004-0016037

PATIENT
  Age: 72 Year
  Sex: Male
  Weight: 73 kg

DRUGS (9)
  1. MORPHINE SULFATE [Suspect]
     Indication: BLOOD PRESSURE
     Dosage: 2 MG, INTRAVENOUS
     Route: 042
     Dates: start: 20040310
  2. CLEVIDIPINE/PLACEBO (CLEVOX) [Suspect]
     Indication: POSTOPERATIVE CARE
     Dosage: 1.2 MG, INTRAVENOUS
     Route: 042
     Dates: start: 20040310, end: 20040310
  3. EPINEPHRINE [Suspect]
     Dosage: 50.05 MG, MINUTE, INTRAVENOUS
     Route: 042
     Dates: start: 20040310, end: 20040315
  4. DOPAMINE HCL [Suspect]
     Dosage: 5 MCG/KG, MINUTE, INTRAVENOUS
     Route: 042
     Dates: start: 20040310, end: 20040317
  5. AMIODARONE HCL [Concomitant]
  6. PROPOFOL [Concomitant]
  7. NITROGLYCERIN [Concomitant]
  8. INSULIN [Concomitant]
  9. POTASSIUM CHLORIDE [Concomitant]

REACTIONS (6)
  - AGITATION [None]
  - CONFUSIONAL STATE [None]
  - DELIRIUM [None]
  - INCREASED VISCOSITY OF BRONCHIAL SECRETION [None]
  - PO2 DECREASED [None]
  - RESPIRATORY FAILURE [None]
